FAERS Safety Report 20576156 (Version 3)
Quarter: 2022Q2

REPORT INFORMATION
  Report Type: Report from Study
  Country: CA (occurrence: CA)
  Receive Date: 20220310
  Receipt Date: 20220510
  Transmission Date: 20220720
  Serious: Yes (Other)
  Sender: FDA-Public Use
  Company Number: CA-HLS-202001781

PATIENT
  Age: 35 Year
  Sex: Female

DRUGS (3)
  1. CLOZARIL [Suspect]
     Active Substance: CLOZAPINE
     Indication: Product used for unknown indication
     Route: 048
     Dates: start: 20131120
  2. CLOZARIL [Suspect]
     Active Substance: CLOZAPINE
     Indication: Product used for unknown indication
     Route: 048
     Dates: start: 20131120
  3. CHLORPROMAZINE [Concomitant]
     Active Substance: CHLORPROMAZINE
     Indication: Product used for unknown indication
     Route: 065

REACTIONS (13)
  - Neutrophil count increased [Unknown]
  - Septic pulmonary embolism [Unknown]
  - Anaemia [Unknown]
  - Lower limb fracture [Unknown]
  - Cardiomyopathy [Not Recovered/Not Resolved]
  - Fall [Unknown]
  - Haematocrit decreased [Unknown]
  - Hyperthyroidism [Unknown]
  - Malaise [Unknown]
  - Left ventricular dysfunction [Unknown]
  - Tachycardia [Unknown]
  - Platelet count increased [Unknown]
  - White blood cell count increased [Unknown]

NARRATIVE: CASE EVENT DATE: 20220414
